FAERS Safety Report 9702755 (Version 1)
Quarter: 2013Q4

REPORT INFORMATION
  Report Type: Spontaneous
  Country: PT (occurrence: None)
  Receive Date: 20131120
  Receipt Date: 20131120
  Transmission Date: 20140711
  Serious: Yes (Hospitalization)
  Sender: FDA-Public Use
  Company Number: 152110

PATIENT
  Age: 27 Year
  Sex: Male

DRUGS (1)
  1. VECURONIUM BROMIDE [Suspect]
     Indication: ANAESTHESIA PROCEDURE

REACTIONS (7)
  - Cardiogenic shock [None]
  - Acute pulmonary oedema [None]
  - Tachycardia [None]
  - Electrocardiogram ST segment depression [None]
  - Ejection fraction decreased [None]
  - Troponin I increased [None]
  - Ventricular hypokinesia [None]
